FAERS Safety Report 22859704 (Version 3)
Quarter: 2023Q4

REPORT INFORMATION
  Report Type: Spontaneous
  Country: IT (occurrence: IT)
  Receive Date: 20230824
  Receipt Date: 20231123
  Transmission Date: 20240110
  Serious: Yes (Hospitalization, Other)
  Sender: FDA-Public Use
  Company Number: IT-JAZZ PHARMACEUTICALS-2023-IT-013754

PATIENT
  Age: 16 Year
  Sex: Female

DRUGS (9)
  1. CANNABIDIOL [Suspect]
     Active Substance: CANNABIDIOL
     Indication: Lennox-Gastaut syndrome
     Dosage: 1.5 MILLILITER, BID
     Route: 048
     Dates: start: 20230614, end: 20230626
  2. CANNABIDIOL [Suspect]
     Active Substance: CANNABIDIOL
     Indication: Cardiac assistance device user
  3. VALPROIC ACID [Concomitant]
     Active Substance: VALPROIC ACID
     Indication: Product used for unknown indication
     Dosage: 800 MILLIGRAM, QD
  4. VALPROIC ACID [Concomitant]
     Active Substance: VALPROIC ACID
     Dosage: 800 MILLIGRAM, QD
  5. RUFINAMIDE [Concomitant]
     Active Substance: RUFINAMIDE
     Indication: Product used for unknown indication
     Dosage: 600 MILLIGRAM, QD
  6. RUFINAMIDE [Concomitant]
     Active Substance: RUFINAMIDE
     Dosage: 600 MILLIGRAM, QD
  7. PERAMPANEL [Concomitant]
     Active Substance: PERAMPANEL
     Indication: Product used for unknown indication
     Dosage: 4 MILLIGRAM
  8. CLOBAZAM [Concomitant]
     Active Substance: CLOBAZAM
     Indication: Product used for unknown indication
     Dosage: 10 MILLIGRAM, QD
  9. CLOBAZAM [Concomitant]
     Active Substance: CLOBAZAM
     Dosage: 10 MILLIGRAM, QD

REACTIONS (4)
  - Epstein-Barr virus infection [Recovered/Resolved]
  - Seizure [Unknown]
  - Vomiting [Unknown]
  - Pyrexia [Unknown]

NARRATIVE: CASE EVENT DATE: 20230615
